FAERS Safety Report 12720939 (Version 1)
Quarter: 2016Q3

REPORT INFORMATION
  Report Type: Spontaneous
  Country: US (occurrence: US)
  Receive Date: 20160907
  Receipt Date: 20160907
  Transmission Date: 20161109
  Serious: No
  Sender: FDA-Public Use
  Company Number: US-WATSON-2015-28939

PATIENT
  Age: 86 Year
  Sex: Female

DRUGS (2)
  1. ALENDRONATE SODIUM (WATSON LABORATORIES) [Suspect]
     Active Substance: ALENDRONATE SODIUM
     Indication: OSTEOPOROSIS
     Dosage: 70 MG, ONCE WEEKLY
     Route: 048
     Dates: start: 201512
  2. ALENDRONATE [Suspect]
     Active Substance: ALENDRONATE SODIUM

REACTIONS (1)
  - Peripheral swelling [Recovering/Resolving]

NARRATIVE: CASE EVENT DATE: 201512
